FAERS Safety Report 4778105-5 (Version None)
Quarter: 2005Q3

REPORT INFORMATION
  Report Type: 
  Country: None (occurrence: None)
  Receive Date: 20050926
  Receipt Date: 20050914
  Transmission Date: 20060218
  Serious: Yes (Other)
  Sender: FDA-Public Use
  Company Number: US-JNJFOC-20050700988

PATIENT
  Age: 61 Year
  Sex: Male
  Weight: 104.78 kg

DRUGS (2)
  1. REMICADE [Suspect]
     Dosage: THREE INFUSIONS
  2. REMICADE [Suspect]
     Indication: DRUG USE FOR UNKNOWN INDICATION

REACTIONS (1)
  - CARDIOMEGALY [None]
